FAERS Safety Report 23043382 (Version 4)
Quarter: 2025Q3

REPORT INFORMATION
  Report Type: Spontaneous
  Country: US (occurrence: US)
  Receive Date: 20231009
  Receipt Date: 20250715
  Transmission Date: 20251020
  Serious: No
  Sender: CSL BEHRING
  Company Number: US-BEH-2023163960

PATIENT
  Sex: Female

DRUGS (26)
  1. HIZENTRA [Suspect]
     Active Substance: HUMAN IMMUNOGLOBULIN G
     Indication: Chronic sinusitis
     Dosage: 14 GRAM, QW, STRENGTH: 4 GRAM  20 ML VIAL
     Route: 058
  2. HIZENTRA [Suspect]
     Active Substance: HUMAN IMMUNOGLOBULIN G
     Dosage: 14 GRAM, QW, STRENGTH: STRENGTH: 4 GRAM  20 ML VIAL
     Route: 058
  3. BREZTRI [Concomitant]
     Active Substance: BUDESONIDE\FORMOTEROL\GLYCOPYRROLATE
  4. SUCRALFATE [Concomitant]
     Active Substance: SUCRALFATE
  5. MELATONIN [Concomitant]
     Active Substance: MELATONIN
  6. VITAMINS NOS [Concomitant]
     Active Substance: VITAMINS
  7. AMOXICILLIN [Concomitant]
     Active Substance: AMOXICILLIN
  8. PREDNISOLONE ACETATE [Concomitant]
     Active Substance: PREDNISOLONE ACETATE
  9. ZAFIRLUKAST [Concomitant]
     Active Substance: ZAFIRLUKAST
  10. SERTRALINE HYDROCHLORIDE [Concomitant]
     Active Substance: SERTRALINE HYDROCHLORIDE
  11. BREO ELLIPTA [Concomitant]
     Active Substance: FLUTICASONE FUROATE\VILANTEROL TRIFENATATE
  12. ABREVA [Concomitant]
     Active Substance: DOCOSANOL
  13. SIMVASTATIN [Concomitant]
     Active Substance: SIMVASTATIN
  14. ASPIRIN [Concomitant]
     Active Substance: ASPIRIN
  15. ATORVASTATIN [Concomitant]
     Active Substance: ATORVASTATIN
  16. BYSTOLIC [Concomitant]
     Active Substance: NEBIVOLOL HYDROCHLORIDE
  17. CALCIUM [Concomitant]
     Active Substance: CALCIUM
  18. GABAPENTIN [Concomitant]
     Active Substance: GABAPENTIN
  19. IRON [Concomitant]
     Active Substance: IRON
  20. LEVOTHYROXINE [Concomitant]
     Active Substance: LEVOTHYROXINE
  21. METFORMIN HYDROCHLORIDE [Concomitant]
     Active Substance: METFORMIN HYDROCHLORIDE
  22. MUCINEX [Concomitant]
     Active Substance: GUAIFENESIN
  23. PANTOPRAZOLE [Concomitant]
     Active Substance: PANTOPRAZOLE
  24. XOPENEX HFA [Concomitant]
     Active Substance: LEVALBUTEROL TARTRATE
  25. MOUNJARO [Concomitant]
     Active Substance: TIRZEPATIDE
  26. SINGULAIR [Concomitant]
     Active Substance: MONTELUKAST SODIUM

REACTIONS (5)
  - Infusion site swelling [Recovered/Resolved]
  - Sinusitis [Unknown]
  - Product dose omission in error [Unknown]
  - Sinusitis [Unknown]
  - Blood potassium increased [Unknown]

NARRATIVE: CASE EVENT DATE: 20230101
